FAERS Safety Report 8795155 (Version 1)
Quarter: 2012Q4

REPORT INFORMATION
  Report Type: Report from Study
  Country: HU (occurrence: HU)
  Receive Date: 20120918
  Receipt Date: 20120918
  Transmission Date: 20130627
  Serious: Yes (Other)
  Sender: FDA-Public Use
  Company Number: HU-ROCHE-1126200

PATIENT
  Age: 69 Year
  Sex: Female

DRUGS (3)
  1. XELODA [Suspect]
     Indication: BREAST CANCER
     Dosage: dose:4+3
     Route: 048
     Dates: start: 20090618, end: 201004
  2. XELODA [Suspect]
     Indication: METASTASES TO LUNG
  3. HERCEPTIN [Concomitant]

REACTIONS (1)
  - Computerised tomogram abnormal [Unknown]
